FAERS Safety Report 6286074-4 (Version None)
Quarter: 2009Q3

REPORT INFORMATION
  Report Type: 
  Country: None (occurrence: None)
  Receive Date: 20090728
  Receipt Date: 20090604
  Transmission Date: 20100115
  Serious: Yes (Other)
  Sender: FDA-Public Use
  Company Number: US-NAPPMUNDI-USA-2009-0038742

PATIENT
  Sex: Female

DRUGS (4)
  1. OXYCONTIN [Suspect]
     Indication: ANALGESIA
     Dosage: 40 MG, BID
     Dates: start: 20011009, end: 20030317
  2. SOMA [Concomitant]
     Dosage: 350 MG, UNK
  3. PERCOCET [Concomitant]
     Dosage: 7.5 MG, QID
  4. AMBIEN [Concomitant]
     Dosage: 10 MG, DAILY

REACTIONS (4)
  - BIPOLAR DISORDER [None]
  - DRUG WITHDRAWAL SYNDROME [None]
  - MALAISE [None]
  - MOOD SWINGS [None]
